FAERS Safety Report 11511213 (Version 1)
Quarter: 2015Q3

REPORT INFORMATION
  Report Type: Spontaneous
  Country: FI (occurrence: FI)
  Receive Date: 20150915
  Receipt Date: 20150915
  Transmission Date: 20151125
  Serious: Yes (Death, Hospitalization)
  Sender: FDA-Public Use
  Company Number: PHHY2015FI110546

PATIENT
  Sex: Male

DRUGS (1)
  1. LEPONEX [Suspect]
     Active Substance: CLOZAPINE
     Indication: SCHIZOPHRENIA, PARANOID TYPE
     Dosage: 500 MG, PER DAY
     Route: 065
     Dates: end: 2011

REACTIONS (6)
  - Arrhythmia [Fatal]
  - Antipsychotic drug level below therapeutic [Unknown]
  - Abnormal behaviour [Unknown]
  - Hallucination, auditory [Unknown]
  - Decreased appetite [Unknown]
  - Insomnia [Unknown]

NARRATIVE: CASE EVENT DATE: 201112
